FAERS Safety Report 23061748 (Version 1)
Quarter: 2023Q4

REPORT INFORMATION
  Report Type: Spontaneous
  Country: CN (occurrence: HK)
  Receive Date: 20231013
  Receipt Date: 20231013
  Transmission Date: 20240109
  Serious: Yes (Death, Hospitalization, Other)
  Sender: FDA-Public Use
  Company Number: CN-009507513-2310HKG003647

PATIENT
  Age: 75 Year
  Sex: Male

DRUGS (2)
  1. PEMBROLIZUMAB [Suspect]
     Active Substance: PEMBROLIZUMAB
     Indication: Hepatocellular carcinoma
     Dosage: 2 MILLIGRAM/KILOGRAM, Q3W
  2. IPILIMUMAB [Suspect]
     Active Substance: IPILIMUMAB
     Indication: Hepatocellular carcinoma
     Dosage: 1 MILLIGRAM/KILOGRAM, Q3W

REACTIONS (4)
  - Immune-mediated myocarditis [Fatal]
  - Immune-mediated myasthenia gravis [Unknown]
  - Immune-mediated myositis [Unknown]
  - Product use in unapproved indication [Unknown]
